FAERS Safety Report 20344931 (Version 4)
Quarter: 2022Q1

REPORT INFORMATION
  Report Type: Spontaneous
  Country: US (occurrence: US)
  Receive Date: 20220118
  Receipt Date: 20220319
  Transmission Date: 20220423
  Serious: Yes (Life-Threatening, Hospitalization, Other)
  Sender: FDA-Public Use
  Company Number: US-NOVARTISPH-NVSC2022US009026

PATIENT
  Age: 6 Year
  Sex: Male
  Weight: 29.7 kg

DRUGS (1)
  1. KYMRIAH [Suspect]
     Active Substance: TISAGENLECLEUCEL
     Indication: Acute lymphocytic leukaemia
     Dosage: 3.7*10^6/KG CART VIABLE T. CELL
     Route: 042
     Dates: start: 20211214

REACTIONS (12)
  - Escherichia sepsis [Recovered/Resolved]
  - Soft tissue infection [Recovered/Resolved]
  - Myelofibrosis [Not Recovered/Not Resolved]
  - Enterococcal infection [Recovered/Resolved with Sequelae]
  - Leukaemia recurrent [Not Recovered/Not Resolved]
  - Febrile neutropenia [Unknown]
  - Cytokine release syndrome [Unknown]
  - Tachycardia [Unknown]
  - Hypotension [Unknown]
  - C-reactive protein increased [Unknown]
  - Serum ferritin increased [Unknown]
  - Therapy non-responder [Not Recovered/Not Resolved]

NARRATIVE: CASE EVENT DATE: 20220103
